FAERS Safety Report 25685634 (Version 2)
Quarter: 2025Q3

REPORT INFORMATION
  Report Type: Spontaneous
  Country: US (occurrence: US)
  Receive Date: 20250815
  Receipt Date: 20250918
  Transmission Date: 20251021
  Serious: Yes (Hospitalization)
  Sender: PFIZER
  Company Number: US-PFIZER INC-PV202500097013

PATIENT
  Age: 12 Year
  Sex: Male

DRUGS (8)
  1. GENOTROPIN [Suspect]
     Active Substance: SOMATROPIN
     Indication: Hypopituitarism
     Dosage: 7X/WK
     Route: 058
     Dates: start: 20240926
  2. GENOTROPIN [Suspect]
     Active Substance: SOMATROPIN
     Indication: Growth hormone deficiency
     Dosage: 6 DAYS/WEEK
     Route: 058
  3. GENOTROPIN [Suspect]
     Active Substance: SOMATROPIN
     Indication: Blood growth hormone abnormal
     Dosage: 0.6 MG, DAILY
     Route: 058
  4. GENOTROPIN [Suspect]
     Active Substance: SOMATROPIN
     Indication: Small for dates baby
     Dosage: 6 DAYS/WEEK
     Route: 058
  5. GENOTROPIN [Suspect]
     Active Substance: SOMATROPIN
     Dosage: 7X/WK
     Route: 058
  6. GENOTROPIN [Suspect]
     Active Substance: SOMATROPIN
     Dosage: 1 MG, DAILY
     Route: 058
  7. GENOTROPIN [Suspect]
     Active Substance: SOMATROPIN
     Dosage: 7X/WK
     Route: 058
  8. CORTEF [Concomitant]
     Active Substance: HYDROCORTISONE
     Dosage: 1 TAB PO QAM, 1 TAB PO Q AFTERNOON, 1/2 TAB PO Q PM
     Route: 048
     Dates: start: 20240926

REACTIONS (3)
  - Anosmia [Unknown]
  - Tri-iodothyronine decreased [Unknown]
  - Blood thyroid stimulating hormone increased [Unknown]
